FAERS Safety Report 8853430 (Version 1)
Quarter: 2012Q4

REPORT INFORMATION
  Report Type: 
  Country: US (occurrence: US)
  Receive Date: 20121022
  Receipt Date: 20121022
  Transmission Date: 20130627
  Serious: Yes (Death)
  Sender: FDA-Public Use
  Company Number: US-GLAXOSMITHKLINE-A0997520A

PATIENT
  Age: 81 Year
  Sex: Male

DRUGS (5)
  1. PROMACTA [Suspect]
     Indication: IDIOPATHIC THROMBOCYTOPENIC PURPURA
     Dosage: 50MG Per day
     Route: 048
  2. WARFARIN [Concomitant]
  3. LORAZEPAM [Concomitant]
  4. ZOLPIDEM [Concomitant]
  5. ENOXAPARIN [Concomitant]

REACTIONS (1)
  - Death [Fatal]
